FAERS Safety Report 22320556 (Version 1)
Quarter: 2023Q2

REPORT INFORMATION
  Report Type: Spontaneous
  Country: US (occurrence: US)
  Receive Date: 20230515
  Receipt Date: 20230515
  Transmission Date: 20230721
  Serious: Yes (Hospitalization)
  Sender: FDA-Public Use
  Company Number: US-ABBVIE-4764006

PATIENT

DRUGS (1)
  1. HUMIRA [Suspect]
     Active Substance: ADALIMUMAB
     Indication: Colitis ulcerative
     Route: 058

REACTIONS (8)
  - Anxiety [Not Recovered/Not Resolved]
  - Paraesthesia [Unknown]
  - Tremor [Unknown]
  - Visual impairment [Unknown]
  - Mental disorder [Unknown]
  - Depersonalisation/derealisation disorder [Unknown]
  - Drug ineffective [Unknown]
  - Ankylosing spondylitis [Unknown]
